FAERS Safety Report 7925777-X (Version None)
Quarter: 2011Q4

REPORT INFORMATION
  Report Type: 
  Country: None (occurrence: None)
  Receive Date: 20111118
  Receipt Date: 20110412
  Transmission Date: 20120403
  Serious: No
  Sender: FDA-Public Use
  Company Number: US-AMGEN-USASP2011019614

PATIENT
  Age: 32 Year
  Sex: Female

DRUGS (2)
  1. ENBREL [Suspect]
     Indication: PSORIATIC ARTHROPATHY
     Dosage: 50 MG, 2 TIMES/WK
     Dates: start: 20101110, end: 20110411
  2. ENBREL [Suspect]
     Indication: PSORIASIS

REACTIONS (4)
  - INJECTION SITE REACTION [None]
  - INJECTION SITE PAIN [None]
  - THERAPEUTIC RESPONSE DECREASED [None]
  - INJECTION SITE HAEMATOMA [None]
